FAERS Safety Report 20853597 (Version 1)
Quarter: 2022Q2

REPORT INFORMATION
  Report Type: Spontaneous
  Country: HR (occurrence: None)
  Receive Date: 20220520
  Receipt Date: 20220520
  Transmission Date: 20220720
  Serious: Yes (Other)
  Sender: FDA-Public Use
  Company Number: 2022A185959

PATIENT
  Age: 5 Year
  Sex: Female
  Weight: 16 kg

DRUGS (2)
  1. PULMICORT TURBUHALER [Suspect]
     Active Substance: BUDESONIDE
     Indication: Cough
     Dosage: 1 ML 0.5 DAILY
     Route: 055
     Dates: start: 20220411, end: 20220415
  2. EBASTINE [Concomitant]
     Active Substance: EBASTINE
     Indication: Hypersensitivity
     Dosage: UNK
     Route: 048
     Dates: start: 202204, end: 2022

REACTIONS (5)
  - Pollakiuria [Recovering/Resolving]
  - Urinary tract disorder [Recovering/Resolving]
  - Dermatitis contact [Recovering/Resolving]
  - Rash [Recovering/Resolving]
  - Perioral dermatitis [Recovering/Resolving]

NARRATIVE: CASE EVENT DATE: 20220421
